FAERS Safety Report 16531334 (Version 1)
Quarter: 2019Q3

REPORT INFORMATION
  Report Type: Other
  Country: CA (occurrence: CA)
  Receive Date: 20190705
  Receipt Date: 20190705
  Transmission Date: 20191004
  Serious: Yes (Hospitalization, Other)
  Sender: FDA-Public Use
  Company Number: CA-APOTEX-2019AP017355

PATIENT
  Age: 60 Year
  Sex: Female

DRUGS (5)
  1. ABRAXANE [Suspect]
     Active Substance: PACLITAXEL
     Indication: PANCREATIC CARCINOMA
     Dosage: 195 MG, THREE EVERY 28 DAYS
     Route: 042
  2. DURVALUMAB. [Suspect]
     Active Substance: DURVALUMAB
     Indication: PANCREATIC CARCINOMA
     Dosage: 1500 MG, ONCE EVERY 4 WEEKS
     Route: 042
  3. TICILIMUMAB [Suspect]
     Active Substance: TREMELIMUMAB
     Indication: PANCREATIC CARCINOMA
     Dosage: 75 MG, Q.I.W
     Route: 042
  4. GEMCITABINE. [Suspect]
     Active Substance: GEMCITABINE
     Indication: PANCREATIC CARCINOMA
     Dosage: 1558 MG, THREE EVERY 28 DAYS
     Route: 042
  5. DURVALUMAB. [Suspect]
     Active Substance: DURVALUMAB
     Dosage: 1500 MG, ONCE EVERY 4 WEEKS
     Route: 042

REACTIONS (1)
  - Bile duct stenosis [Not Recovered/Not Resolved]
